FAERS Safety Report 5463522-0 (Version None)
Quarter: 2007Q3

REPORT INFORMATION
  Report Type: 
  Country: None (occurrence: None)
  Receive Date: 20070920
  Receipt Date: 20070912
  Transmission Date: 20080115
  Serious: Yes (Other)
  Sender: FDA-Public Use
  Company Number: US-SHR-US-2006-015952

PATIENT
  Age: 39 Year
  Sex: Female

DRUGS (4)
  1. BETASERON [Suspect]
     Indication: SECONDARY PROGRESSIVE MULTIPLE SCLEROSIS
     Dosage: 8 MIU, EVERY 2D
     Route: 058
     Dates: start: 20060522, end: 20070301
  2. LORAZEPAM [Concomitant]
  3. EFFEXOR [Concomitant]
  4. ANTIDEPRESSANTS [Concomitant]
     Indication: DEPRESSION

REACTIONS (4)
  - ANGER [None]
  - DEPRESSION [None]
  - MULTIPLE SCLEROSIS [None]
  - PANIC ATTACK [None]
